FAERS Safety Report 21512952 (Version 2)
Quarter: 2022Q4

REPORT INFORMATION
  Report Type: Spontaneous
  Country: US (occurrence: None)
  Receive Date: 20221027
  Receipt Date: 20221028
  Transmission Date: 20230113
  Serious: Yes (Other)
  Sender: FDA-Public Use
  Company Number: US-ROCHE-3206678

PATIENT
  Age: 59 Year
  Sex: Female
  Weight: 61.290 kg

DRUGS (9)
  1. RITUXAN [Suspect]
     Active Substance: RITUXIMAB
     Indication: Chronic inflammatory demyelinating polyradiculoneuropathy
     Dosage: YES
     Route: 041
     Dates: start: 202102
  2. CELLCEPT [Suspect]
     Active Substance: MYCOPHENOLATE MOFETIL
     Indication: Chronic inflammatory demyelinating polyradiculoneuropathy
     Dosage: 500 MG ORALLY TWICE DAILY, MORNING AND NIGHT ;ONGOING: YES, 250 MG CAPSULE MORNING AND NIGHT FOR 2 W
     Route: 048
     Dates: start: 20220821
  3. CELLCEPT [Suspect]
     Active Substance: MYCOPHENOLATE MOFETIL
     Indication: Chronic inflammatory demyelinating polyradiculoneuropathy
     Route: 048
  4. GABAPENTIN [Concomitant]
     Active Substance: GABAPENTIN
     Indication: Neuralgia
     Dosage: 900 MG ORALLY THREE TIMES PER DAY
     Route: 048
  5. TRAMADOL [Concomitant]
     Active Substance: TRAMADOL
     Indication: Pain
     Route: 048
  6. ESTRADIOL [Concomitant]
     Active Substance: ESTRADIOL
     Dosage: HORMONE LEVELS FROM COMPLETE HYSTERECTOMY
     Route: 048
  7. CHOLECALCIFEROL [Concomitant]
     Active Substance: CHOLECALCIFEROL
     Dosage: VITAMIN D LEVELS, NEUROLOGIC HEALTH
     Route: 048
  8. DRONABINOL [Concomitant]
     Active Substance: DRONABINOL
     Indication: Pain
  9. ESTRADIOL [Concomitant]
     Active Substance: ESTRADIOL
     Dosage: HORMONE LEVELS FROM COMPLETE HYSTERECTOMY
     Route: 062

REACTIONS (9)
  - Tachycardia [Not Recovered/Not Resolved]
  - Fatigue [Not Recovered/Not Resolved]
  - Neuralgia [Not Recovered/Not Resolved]
  - Infusion related reaction [Recovered/Resolved]
  - Malaise [Not Recovered/Not Resolved]
  - Feeling abnormal [Not Recovered/Not Resolved]
  - Abdominal distension [Not Recovered/Not Resolved]
  - Immunodeficiency [Not Recovered/Not Resolved]
  - Off label use [Unknown]

NARRATIVE: CASE EVENT DATE: 20210201
